FAERS Safety Report 8949095 (Version 2)
Quarter: 2013Q1

REPORT INFORMATION
  Report Type: Report from Study
  Country: BR (occurrence: BR)
  Receive Date: 20121206
  Receipt Date: 20130124
  Transmission Date: 20140127
  Serious: Yes (Hospitalization)
  Sender: FDA-Public Use
  Company Number: BR-ROCHE-1164332

PATIENT
  Sex: Female
  Weight: 35 kg

DRUGS (1)
  1. ACTEMRA [Suspect]
     Indication: JUVENILE IDIOPATHIC ARTHRITIS
     Dosage: LAST DOSE PRIOR TO SAE: JUN/2012, PERFORMED 7 INFUSION SO FAR
     Route: 042
     Dates: start: 20120414

REACTIONS (2)
  - Pneumonia [Not Recovered/Not Resolved]
  - Pleural effusion [Recovering/Resolving]
